FAERS Safety Report 4642398-5 (Version None)
Quarter: 2005Q2

REPORT INFORMATION
  Report Type: 
  Country: None (occurrence: None)
  Receive Date: 20050421
  Receipt Date: 20050421
  Transmission Date: 20051028
  Serious: Yes (Hospitalization)
  Sender: FDA-Public Use
  Company Number: None

PATIENT
  Sex: Male
  Weight: 85.26 kg

DRUGS (4)
  1. CISPLATIN [Suspect]
     Indication: SQUAMOUS CELL CARCINOMA
     Dosage: 100MG/M2   DAY 1 AND 22   INTRAVENOU
     Route: 042
     Dates: start: 20050412, end: 20050412
  2. ZOFRAN [Concomitant]
  3. DIFLUCAN [Concomitant]
  4. EFFEXOR XR [Concomitant]

REACTIONS (1)
  - DEHYDRATION [None]
